FAERS Safety Report 7732402-X (Version None)
Quarter: 2011Q3

REPORT INFORMATION
  Report Type: 
  Country: None (occurrence: None)
  Receive Date: 20110906
  Receipt Date: 20110831
  Transmission Date: 20111222
  Serious: Yes (Disabling, Other)
  Sender: FDA-Public Use
  Company Number: US-BAYER-2011-079870

PATIENT
  Age: 80 Year
  Sex: Male

DRUGS (3)
  1. ZETIA [Concomitant]
  2. LEVITRA [Suspect]
     Indication: ERECTILE DYSFUNCTION
     Dosage: UNK
     Dates: start: 20110822, end: 20110822
  3. LOPRESSOR [Concomitant]

REACTIONS (1)
  - BLINDNESS UNILATERAL [None]
